FAERS Safety Report 12109847 (Version 2)
Quarter: 2016Q1

REPORT INFORMATION
  Report Type: Report from Study
  Country: DE (occurrence: DE)
  Receive Date: 20160224
  Receipt Date: 20160226
  Transmission Date: 20160526
  Serious: Yes (Hospitalization)
  Sender: FDA-Public Use
  Company Number: DE-ABBVIE-16P-062-1564712-00

PATIENT
  Age: 82 Year
  Sex: Male

DRUGS (7)
  1. NEXIUM [Concomitant]
     Active Substance: ESOMEPRAZOLE MAGNESIUM
     Indication: PRODUCT USED FOR UNKNOWN INDICATION
     Route: 065
  2. DUODOPA [Suspect]
     Active Substance: CARBIDOPA\LEVODOPA
     Indication: PARKINSON^S DISEASE
     Dosage: MD 10.6ML, CRD 6.9ML/H, CRN 5.5ML/H, ED 3.5ML
     Route: 050
     Dates: start: 20140127, end: 20160213
  3. METOPROLOL. [Concomitant]
     Active Substance: METOPROLOL
     Indication: PRODUCT USED FOR UNKNOWN INDICATION
     Route: 065
  4. AQUAPHOR [Concomitant]
     Active Substance: PETROLATUM
     Indication: PRODUCT USED FOR UNKNOWN INDICATION
     Route: 065
  5. ACETYLSALICYLIC ACID [Concomitant]
     Active Substance: ASPIRIN
     Indication: PRODUCT USED FOR UNKNOWN INDICATION
     Route: 065
  6. DUODOPA [Suspect]
     Active Substance: CARBIDOPA\LEVODOPA
     Dosage: MD 10.6ML, CRD 6.9ML/H, CRN 5.5ML/H, ED 3.5ML
     Route: 050
     Dates: start: 20160217
  7. CEFTRIAXON [Concomitant]
     Active Substance: CEFTRIAXONE
     Indication: PRODUCT USED FOR UNKNOWN INDICATION
     Route: 065

REACTIONS (9)
  - Pulmonary oedema [Not Recovered/Not Resolved]
  - Stoma site erythema [Not Recovered/Not Resolved]
  - Akinesia [Not Recovered/Not Resolved]
  - Purulent discharge [Not Recovered/Not Resolved]
  - Salivary hypersecretion [Not Recovered/Not Resolved]
  - Hyperkinesia [Not Recovered/Not Resolved]
  - Pneumonia [Not Recovered/Not Resolved]
  - Inflammatory marker increased [Not Recovered/Not Resolved]
  - Stoma site inflammation [Not Recovered/Not Resolved]

NARRATIVE: CASE EVENT DATE: 20160213
